FAERS Safety Report 4863216-6 (Version None)
Quarter: 2005Q4

REPORT INFORMATION
  Report Type: 
  Country: None (occurrence: None)
  Receive Date: 20051201
  Receipt Date: 20050722
  Transmission Date: 20060501
  Serious: No
  Sender: FDA-Public Use
  Company Number: 2005PV000548

PATIENT
  Age: 53 Year
  Sex: Male
  Weight: 122.4712 kg

DRUGS (10)
  1. BYETTA [Suspect]
     Indication: DIABETES MELLITUS NON-INSULIN-DEPENDENT
     Dosage: 10 MCG; BID; SC; 5 MCG; BID; SC
     Route: 058
     Dates: start: 20050601, end: 20050701
  2. BYETTA [Suspect]
     Indication: DIABETES MELLITUS NON-INSULIN-DEPENDENT
     Dosage: 10 MCG; BID; SC; 5 MCG; BID; SC
     Route: 058
     Dates: start: 20050701
  3. AVANDIA [Concomitant]
  4. METFORMIN [Concomitant]
  5. OMEPRAZOLE [Concomitant]
  6. ZEBETA [Concomitant]
  7. COUMADIN [Concomitant]
  8. SULFASALAZINE [Concomitant]
  9. MULTIVITAMIN [Concomitant]
  10. LEVOXYL [Concomitant]

REACTIONS (5)
  - DYSPEPSIA [None]
  - FLATULENCE [None]
  - NAUSEA [None]
  - VOMITING PROJECTILE [None]
  - WEIGHT DECREASED [None]
